FAERS Safety Report 24938881 (Version 1)
Quarter: 2025Q1

REPORT INFORMATION
  Report Type: Spontaneous
  Country: US (occurrence: None)
  Receive Date: 20250206
  Receipt Date: 20250206
  Transmission Date: 20250408
  Serious: Yes (Other)
  Sender: FDA-CTU
  Company Number: None

PATIENT
  Age: 62 Year
  Sex: Female
  Weight: 111.7 kg

DRUGS (1)
  1. VANCOMYCIN HYDROCHLORIDE [Suspect]
     Active Substance: VANCOMYCIN HYDROCHLORIDE
     Indication: Limb injury
     Route: 042
     Dates: start: 20250131, end: 20250131

REACTIONS (5)
  - Pruritus [None]
  - Erythema [None]
  - Infusion related reaction [None]
  - Blood pressure decreased [None]
  - Anaphylactic reaction [None]

NARRATIVE: CASE EVENT DATE: 20250131
